FAERS Safety Report 6474744-4 (Version None)
Quarter: 2009Q4

REPORT INFORMATION
  Report Type: 
  Country: None (occurrence: None)
  Receive Date: 20091204
  Receipt Date: 20090525
  Transmission Date: 20100525
  Serious: Yes (Death, Hospitalization)
  Sender: FDA-Public Use
  Company Number: Z0000650B

PATIENT
  Sex: Female
  Weight: 74.5 kg

DRUGS (2)
  1. TOPOTECAN [Suspect]
     Indication: NEOPLASM
     Dosage: 4MG SEE DOSAGE TEXT
     Route: 048
     Dates: start: 20081127, end: 20081211
  2. PAZOPANIB [Suspect]
     Indication: NEOPLASM
     Dosage: 800MG PER DAY
     Route: 048
     Dates: start: 20081128, end: 20081229

REACTIONS (1)
  - HEPATIC FAILURE [None]
